FAERS Safety Report 20481867 (Version 1)
Quarter: 2022Q1

REPORT INFORMATION
  Report Type: Other
  Country: PT (occurrence: None)
  Receive Date: 20220216
  Receipt Date: 20220216
  Transmission Date: 20220423
  Serious: Yes (Hospitalization)
  Sender: FDA-Public Use
  Company Number: PT-DEXPHARM-20220202

PATIENT
  Age: 33 Year
  Sex: Female

DRUGS (5)
  1. CHLORHEXIDINE ACETATE\ISOPROPYL ALCOHOL [Suspect]
     Active Substance: CHLORHEXIDINE ACETATE\ISOPROPYL ALCOHOL
     Indication: Infection prophylaxis
     Route: 050
  2. ROPIVACAINE [Suspect]
     Active Substance: ROPIVACAINE
     Indication: Analgesic therapy
     Dosage: THE TOTAL AMOUNT OF ROPIVACAINE 0.2% ADMINISTERED TO THAT SPECIFIED POINT WAS 140 ML (DURING A TO...
     Route: 050
  3. SUFENTANIL [Suspect]
     Active Substance: SUFENTANIL
     Indication: Analgesic therapy
     Dosage: 7.5 MICROG
     Route: 050
  4. FOLIC ACID [Concomitant]
     Active Substance: FOLIC ACID
     Indication: Supplementation therapy
  5. IRON [Concomitant]
     Active Substance: IRON
     Indication: Supplementation therapy

REACTIONS (3)
  - Lumbosacral radiculopathy [Recovered/Resolved]
  - Maternal exposure during pregnancy [Recovered/Resolved]
  - Labour complication [Recovered/Resolved]
